FAERS Safety Report 10041801 (Version 1)
Quarter: 2014Q1

REPORT INFORMATION
  Report Type: Spontaneous
  Country: IT (occurrence: None)
  Receive Date: 20140325
  Receipt Date: 20140325
  Transmission Date: 20141002
  Serious: Yes (Other)
  Sender: FDA-Public Use
  Company Number: FK201400993

PATIENT
  Age: 66 Year
  Sex: Male

DRUGS (2)
  1. GEMCITABINE [Suspect]
     Indication: MYXOFIBROSARCOMA
  2. TAXOTERE (DOCETAXEL) (DOCETAXEL) [Suspect]
     Indication: MYXOFIBROSARCOMA

REACTIONS (3)
  - Dysgeusia [None]
  - Erythema [None]
  - Mucosal inflammation [None]
